FAERS Safety Report 4572292-X (Version None)
Quarter: 2005Q1

REPORT INFORMATION
  Report Type: 
  Country: None (occurrence: None)
  Receive Date: 20050203
  Receipt Date: 20050119
  Transmission Date: 20050727
  Serious: No
  Sender: FDA-Public Use
  Company Number: B0365313A

PATIENT
  Sex: 0

DRUGS (2)
  1. ALKERAN [Suspect]
     Indication: MALIGNANT MELANOMA
     Dosage: 10 MG/LITRE
  2. TUMOR NECROSIS FACTOR (TUMOR NECROSIS FACTOR) [Suspect]
     Indication: MALIGNANT MELANOMA
     Dosage: INTRAVENOUS
     Route: 042

REACTIONS (2)
  - AMPUTATION [None]
  - RHABDOMYOLYSIS [None]
